FAERS Safety Report 19480845 (Version 4)
Quarter: 2021Q3

REPORT INFORMATION
  Report Type: Spontaneous
  Country: US (occurrence: US)
  Receive Date: 20210630
  Receipt Date: 20210916
  Transmission Date: 20211014
  Serious: No
  Sender: FDA-Public Use
  Company Number: US-BIOMARINAP-US-2021-136929

PATIENT
  Age: 32 Year
  Sex: Male
  Weight: 27.3 kg

DRUGS (1)
  1. VIMIZIM [Suspect]
     Active Substance: ELOSULFASE ALFA
     Indication: MUCOPOLYSACCHARIDOSIS IV
     Dosage: 60 MILLIGRAM, QW
     Route: 042
     Dates: start: 2014

REACTIONS (5)
  - Pain [Not Recovered/Not Resolved]
  - Hot flush [Unknown]
  - Headache [Unknown]
  - Drug ineffective [Unknown]
  - Migraine [Not Recovered/Not Resolved]
